FAERS Safety Report 8010016-4 (Version None)
Quarter: 2011Q4

REPORT INFORMATION
  Report Type: 
  Country: None (occurrence: None)
  Receive Date: 20111228
  Receipt Date: 20111214
  Transmission Date: 20120403
  Serious: Yes (Other)
  Sender: FDA-Public Use
  Company Number: US-ELI_LILLY_AND_COMPANY-US201112000945

PATIENT
  Sex: Female

DRUGS (9)
  1. VITAMIN D [Concomitant]
  2. FORTEO [Suspect]
     Indication: OSTEOPOROSIS
     Dosage: 20 UG, QD
     Route: 065
     Dates: start: 20111117
  3. SOMA [Concomitant]
  4. ANALGESICS [Concomitant]
     Indication: PAIN
  5. LYRICA [Concomitant]
  6. LACTULOSE [Concomitant]
  7. LIDODERM [Concomitant]
  8. VALIUM [Concomitant]
  9. TRILEPTAL [Concomitant]

REACTIONS (28)
  - CONVULSION [None]
  - BACK PAIN [None]
  - INJECTION SITE ERYTHEMA [None]
  - BALANCE DISORDER [None]
  - METABOLIC DISORDER [None]
  - MALAISE [None]
  - VISION BLURRED [None]
  - TREMOR [None]
  - INCREASED APPETITE [None]
  - BLOOD SODIUM DECREASED [None]
  - VITAMIN D DECREASED [None]
  - PARTIAL SEIZURES [None]
  - PAIN [None]
  - ASTHENIA [None]
  - ABDOMINAL PAIN UPPER [None]
  - GAIT DISTURBANCE [None]
  - ARTHROPATHY [None]
  - HYPOTENSION [None]
  - INJECTION SITE RASH [None]
  - NECK PAIN [None]
  - CONSTIPATION [None]
  - BLOOD GLUCOSE DECREASED [None]
  - DRUG DOSE OMISSION [None]
  - BONE PAIN [None]
  - DIZZINESS [None]
  - MUSCULOSKELETAL PAIN [None]
  - BLOOD CALCIUM DECREASED [None]
  - BLOOD POTASSIUM INCREASED [None]
